FAERS Safety Report 19439766 (Version 2)
Quarter: 2021Q3

REPORT INFORMATION
  Report Type: Spontaneous
  Country: US (occurrence: US)
  Receive Date: 20210620
  Receipt Date: 20210701
  Transmission Date: 20211014
  Serious: No
  Sender: FDA-Public Use
  Company Number: US-GLAXOSMITHKLINE-US2021AMR130174

PATIENT
  Age: 68 Year
  Sex: Female

DRUGS (2)
  1. ZEJULA [Suspect]
     Active Substance: NIRAPARIB
     Indication: OVARIAN CANCER
     Dosage: 300 MG, QD
     Dates: start: 20210607, end: 20210613
  2. ZEJULA [Suspect]
     Active Substance: NIRAPARIB
     Dosage: 200 MG

REACTIONS (10)
  - Insomnia [Unknown]
  - Platelet count decreased [Unknown]
  - Decreased appetite [Unknown]
  - Adverse drug reaction [Unknown]
  - Headache [Unknown]
  - Constipation [Not Recovered/Not Resolved]
  - Pruritus [Unknown]
  - Retching [Not Recovered/Not Resolved]
  - Tachycardia [Unknown]
  - Nausea [Unknown]

NARRATIVE: CASE EVENT DATE: 202106
